FAERS Safety Report 4384169-3 (Version None)
Quarter: 2004Q2

REPORT INFORMATION
  Report Type: 
  Country: None (occurrence: None)
  Receive Date: 20040623
  Receipt Date: 20040623
  Transmission Date: 20050107
  Serious: Yes (Life-Threatening)
  Sender: FDA-Public Use
  Company Number: None

PATIENT
  Sex: Female

DRUGS (1)
  1. NOVOLIN N [Suspect]
     Indication: DIABETES MELLITUS
     Dosage: 15 UNITS TWICE DAIL SQ
     Route: 058
     Dates: start: 20040427, end: 20040519

REACTIONS (1)
  - HYPOGLYCAEMIA [None]
